FAERS Safety Report 5905974-5 (Version None)
Quarter: 2008Q4

REPORT INFORMATION
  Report Type: 
  Country: None (occurrence: None)
  Receive Date: 20081002
  Receipt Date: 20080928
  Transmission Date: 20090506
  Serious: Yes (Hospitalization)
  Sender: FDA-Public Use
  Company Number: JP-MERCK-0809USA03849

PATIENT
  Age: 70 Year
  Sex: Female

DRUGS (7)
  1. FOSAMAX [Suspect]
     Indication: OSTEOPOROSIS
     Route: 048
     Dates: start: 20070323, end: 20080229
  2. DIDRONEL [Concomitant]
     Route: 048
     Dates: start: 20061116, end: 20070322
  3. PREDNISOLONE [Concomitant]
     Route: 048
  4. LANSOPRAZOLE [Concomitant]
     Route: 048
  5. CYANOCOBALAMIN [Concomitant]
     Route: 048
  6. GLAKAY [Concomitant]
     Route: 048
  7. MUCOSTA [Concomitant]
     Route: 048

REACTIONS (1)
  - OSTEOMYELITIS [None]
